FAERS Safety Report 9405871 (Version 4)
Quarter: 2014Q2

REPORT INFORMATION
  Report Type: Spontaneous
  Country: US (occurrence: US)
  Receive Date: 20130717
  Receipt Date: 20140611
  Transmission Date: 20141212
  Serious: Yes (Death, Hospitalization)
  Sender: FDA-Public Use
  Company Number: US-GLAXOSMITHKLINE-A1033258A

PATIENT
  Sex: Female

DRUGS (1)
  1. AVANDIA [Suspect]
     Indication: DIABETES MELLITUS
     Dosage: 8MG PER DAY
     Route: 048
     Dates: start: 200607, end: 200707

REACTIONS (7)
  - Enterococcal sepsis [Fatal]
  - Acute respiratory failure [Fatal]
  - Chronic respiratory failure [Fatal]
  - Cardiac failure congestive [Unknown]
  - Myocardial ischaemia [Unknown]
  - Cardiac failure chronic [Unknown]
  - Coronary arterial stent insertion [Unknown]
